FAERS Safety Report 9783727 (Version 1)
Quarter: 2013Q4

REPORT INFORMATION
  Report Type: Spontaneous
  Country: US (occurrence: US)
  Receive Date: 20131226
  Receipt Date: 20131226
  Transmission Date: 20140711
  Serious: Yes (Hospitalization)
  Sender: FDA-Public Use
  Company Number: US-B.I. PHARMACEUTICALS,INC./RIDGEFIELD-2013-BI-43565BP

PATIENT
  Sex: Female

DRUGS (3)
  1. ATROVENT INHALATION SOLUTION [Suspect]
     Indication: ASTHMA
     Dosage: 4 PUF
     Route: 055
     Dates: start: 201310
  2. TRAMEDOL [Concomitant]
     Indication: MUSCULOSKELETAL PAIN
     Dosage: 1-2 TABLETS
     Route: 048
  3. SKELAXIN [Concomitant]
     Indication: MUSCULOSKELETAL PAIN
     Dosage: 800 MG
     Route: 048

REACTIONS (3)
  - Pneumonia [Recovered/Resolved]
  - Full blood count decreased [Unknown]
  - Intentional overdose [Unknown]
